FAERS Safety Report 19488966 (Version 1)
Quarter: 2021Q3

REPORT INFORMATION
  Report Type: Spontaneous
  Country: CN (occurrence: CN)
  Receive Date: 20210702
  Receipt Date: 20210702
  Transmission Date: 20211014
  Serious: Yes (Hospitalization)
  Sender: FDA-Public Use
  Company Number: CN-BAXTER-2021BAX018530

PATIENT
  Age: 55 Year
  Sex: Female
  Weight: 33 kg

DRUGS (4)
  1. 5% GLUCOSE  INJECTION [Suspect]
     Active Substance: DEXTROSE
     Indication: MEDICATION DILUTION
     Dosage: AC?T REGIMEN FOR FIRST CYCLE, 5% GLUCOSE 100 ML + PIRARUBICIN HYDROCHLORIDE 60 MG, D1, Q14D
     Route: 041
     Dates: start: 20210605, end: 20210605
  2. 0.9% SODIUM CHLORIDE INJECTION [Suspect]
     Active Substance: SODIUM CHLORIDE
     Indication: MEDICATION DILUTION
     Dosage: AC?T REGIMEN FOR FIRST CYCLE, 0.9% SODIUM CHLORIDE 100 ML + CYCLOPHOSPHAMIDE 600 MG, D1, Q14D
     Route: 041
     Dates: start: 20210605, end: 20210605
  3. PIRARUBICIN HYDROCHLORIDE [Suspect]
     Active Substance: PIRARUBICIN HYDROCHLORIDE
     Indication: BREAST CANCER FEMALE
     Dosage: AC?T REGIMEN FOR FIRST CYCLE, PIRARUBICIN HYDROCHLORIDE 60 MG + 5% GLUCOSE 100 ML, D1, Q14D
     Route: 041
     Dates: start: 20210605, end: 20210605
  4. ENDOXAN [Suspect]
     Active Substance: CYCLOPHOSPHAMIDE
     Indication: BREAST CANCER FEMALE
     Dosage: AC?T REGIMEN FOR FIRST CYCLE, CYCLOPHOSPHAMIDE 600 MG + 0.9% SODIUM CHLORIDE 100 ML, D1, Q14DAYS
     Route: 041
     Dates: start: 20210605, end: 20210605

REACTIONS (1)
  - Myelosuppression [Recovered/Resolved]

NARRATIVE: CASE EVENT DATE: 20210618
